FAERS Safety Report 8645605 (Version 3)
Quarter: 2012Q4

REPORT INFORMATION
  Report Type: 
  Country: FR (occurrence: FR)
  Receive Date: 20120702
  Receipt Date: 20121127
  Transmission Date: 20130627
  Serious: Yes (Life-Threatening, Other)
  Sender: FDA-Public Use
  Company Number: FR-ASTRAZENECA-2012SE43801

PATIENT
  Age: 23 Year
  Sex: Female

DRUGS (7)
  1. CARBOCAINE [Suspect]
     Indication: ANAESTHESIA
     Dates: start: 20120530, end: 20120530
  2. NAROPEINE [Suspect]
     Indication: ANAESTHESIA
     Dates: start: 20120530, end: 20120530
  3. CEFAZOLINE [Suspect]
     Indication: PROPHYLAXIS
     Route: 042
     Dates: start: 20120530, end: 20120530
  4. HYPNOVEL [Suspect]
     Dates: start: 20120530, end: 20120530
  5. SUFENTA [Suspect]
     Dosage: 5, ONCE/SINGLE ADMINISTRATION
     Dates: start: 20120530, end: 20120530
  6. BETADINE [Suspect]
  7. BIRTH CONTROL PILL [Concomitant]

REACTIONS (4)
  - Laryngeal oedema [Recovered/Resolved]
  - Cardiac arrest [Recovered/Resolved]
  - Ventricular tachycardia [Recovered/Resolved]
  - Anaphylactic shock [Recovered/Resolved]
